FAERS Safety Report 12332303 (Version 2)
Quarter: 2016Q3

REPORT INFORMATION
  Report Type: Spontaneous
  Country: US (occurrence: US)
  Receive Date: 20160504
  Receipt Date: 20160804
  Transmission Date: 20161109
  Serious: Yes (Other)
  Sender: FDA-Public Use
  Company Number: US-BAYER-2016-080274

PATIENT
  Age: 46 Year
  Sex: Male
  Weight: 72.56 kg

DRUGS (3)
  1. AVELOX [Suspect]
     Active Substance: MOXIFLOXACIN HYDROCHLORIDE
     Indication: PYREXIA
     Dosage: 400 MG, UNK
     Route: 048
     Dates: start: 20130428
  2. AVELOX [Suspect]
     Active Substance: MOXIFLOXACIN HYDROCHLORIDE
     Indication: COUGH
  3. AVELOX [Suspect]
     Active Substance: MOXIFLOXACIN HYDROCHLORIDE
     Indication: CHILLS

REACTIONS (3)
  - Neuropathy peripheral [None]
  - Injury [None]
  - Anxiety [None]

NARRATIVE: CASE EVENT DATE: 201304
